FAERS Safety Report 18256645 (Version 1)
Quarter: 2020Q3

REPORT INFORMATION
  Report Type: Spontaneous
  Country: US (occurrence: US)
  Receive Date: 20200910
  Receipt Date: 20200910
  Transmission Date: 20201103
  Serious: Yes (Hospitalization)
  Sender: FDA-Public Use
  Company Number: None

PATIENT
  Sex: Female

DRUGS (1)
  1. TALTZ [Suspect]
     Active Substance: IXEKIZUMAB
     Indication: PSORIATIC ARTHROPATHY
     Dosage: OTHER DOSE:1 PEN; Q4W SQ?
     Route: 058
     Dates: start: 20190910

REACTIONS (4)
  - Pyrexia [None]
  - Pelvic inflammatory disease [None]
  - Malaise [None]
  - Pain [None]
